FAERS Safety Report 9439583 (Version 1)
Quarter: 2013Q3

REPORT INFORMATION
  Report Type: Spontaneous
  Country: DK (occurrence: DK)
  Receive Date: 20130805
  Receipt Date: 20130805
  Transmission Date: 20140515
  Serious: Yes (Other)
  Sender: FDA-Public Use
  Company Number: DK-009507513-1307DNK015465

PATIENT
  Sex: Female

DRUGS (3)
  1. DIPROSPAN [Suspect]
     Indication: HYPERSENSITIVITY
     Dosage: 2 ML, UNK
     Dates: start: 19930506
  2. DIPROSPAN [Suspect]
     Dosage: 2 ML, UNK
     Dates: start: 19930616
  3. DIPROSPAN [Suspect]
     Dosage: EVERY 4TH TO  6TH WEEK

REACTIONS (3)
  - Adrenal insufficiency [Not Recovered/Not Resolved]
  - Lipohypertrophy [Unknown]
  - Skin atrophy [Unknown]
